FAERS Safety Report 9469877 (Version 1)
Quarter: 2013Q3

REPORT INFORMATION
  Report Type: Report from Study
  Country: IE (occurrence: IE)
  Receive Date: 20130822
  Receipt Date: 20130822
  Transmission Date: 20140515
  Serious: Yes (Hospitalization)
  Sender: FDA-Public Use
  Company Number: IE-ROCHE-1264831

PATIENT
  Age: 66 Year
  Sex: Female

DRUGS (1)
  1. PEGFILGRASTIM [Suspect]
     Indication: OVARIAN CANCER
     Dosage: 6 MG 10.6M/S, POST CHEMOTHERAPY MONTHLY
     Route: 058
     Dates: start: 20130724

REACTIONS (2)
  - Pyrexia [Recovered/Resolved]
  - White blood cell count decreased [Recovered/Resolved]
